FAERS Safety Report 11549107 (Version 1)
Quarter: 2015Q3

REPORT INFORMATION
  Report Type: Report from Study
  Country: US (occurrence: US)
  Receive Date: 20150924
  Receipt Date: 20150924
  Transmission Date: 20151125
  Serious: Yes (Hospitalization)
  Sender: FDA-Public Use
  Company Number: US-ACTELION-A-NJ2015-122180

PATIENT
  Age: 76 Year
  Sex: Male

DRUGS (1)
  1. MACITENTAN [Suspect]
     Active Substance: MACITENTAN
     Indication: PULMONARY ARTERIAL HYPERTENSION
     Dosage: 10 MG, QD
     Route: 048
     Dates: start: 20150603, end: 201507

REACTIONS (6)
  - Fatigue [Unknown]
  - Lethargy [Unknown]
  - Dyspnoea [Unknown]
  - Treatment noncompliance [Unknown]
  - Malaise [Unknown]
  - Somnolence [Unknown]
